FAERS Safety Report 5338391-X (Version None)
Quarter: 2007Q2

REPORT INFORMATION
  Report Type: 
  Country: None (occurrence: None)
  Receive Date: 20070530
  Receipt Date: 20070518
  Transmission Date: 20071010
  Serious: Yes (Hospitalization)
  Sender: FDA-Public Use
  Company Number: KR-ELI_LILLY_AND_COMPANY-KR200705004670

PATIENT
  Age: 60 Year
  Sex: Male

DRUGS (1)
  1. HUMALOG [Suspect]
     Indication: DIABETES MELLITUS
     Dosage: UNK IU, UNK
     Route: 058
     Dates: start: 20040101, end: 20070501

REACTIONS (2)
  - ABDOMINAL MASS [None]
  - PYREXIA [None]
